FAERS Safety Report 8506233-7 (Version None)
Quarter: 2012Q3

REPORT INFORMATION
  Report Type: 
  Country: None (occurrence: None)
  Receive Date: 20120712
  Receipt Date: 20120627
  Transmission Date: 20120928
  Serious: Yes (Other)
  Sender: FDA-Public Use
  Company Number: DK-WATSON-2012-11521

PATIENT
  Age: 74 Year
  Sex: Male

DRUGS (3)
  1. TRAMADOL HCL [Suspect]
     Indication: BACK PAIN
     Dosage: 50 MG, Q8H
     Route: 065
  2. IBUPROFEN [Suspect]
     Indication: BACK PAIN
     Dosage: 400 MG, Q8H
     Route: 065
  3. WARFARIN SODIUM [Suspect]
     Indication: ATRIAL FIBRILLATION
     Dosage: UNK
     Route: 065

REACTIONS (2)
  - INTERNATIONAL NORMALISED RATIO INCREASED [None]
  - POTENTIATING DRUG INTERACTION [None]
